FAERS Safety Report 9536830 (Version 1)
Quarter: 2013Q3

REPORT INFORMATION
  Report Type: Spontaneous
  Country: US (occurrence: None)
  Receive Date: 20130918
  Receipt Date: 20130918
  Transmission Date: 20140515
  Serious: Yes (Hospitalization)
  Sender: FDA-Public Use
  Company Number: None

PATIENT
  Age: 65 Year
  Sex: Female
  Weight: 66.3 kg

DRUGS (2)
  1. CISPLATIN [Suspect]
     Dates: end: 20130822
  2. DOCETAXEL (TAXOTERE) [Suspect]
     Dates: end: 20130822

REACTIONS (2)
  - Back pain [None]
  - Abdominal pain lower [None]
